FAERS Safety Report 22812652 (Version 3)
Quarter: 2023Q4

REPORT INFORMATION
  Report Type: Spontaneous
  Country: MX (occurrence: MX)
  Receive Date: 20230811
  Receipt Date: 20231008
  Transmission Date: 20240110
  Serious: No
  Sender: FDA-Public Use
  Company Number: MX-SANDOZ-SDZ2023MX011178

PATIENT
  Sex: Male
  Weight: 27 kg

DRUGS (1)
  1. OMNITROPE [Suspect]
     Active Substance: SOMATROPIN
     Indication: Foetal growth restriction
     Dosage: 1 MG, QD
     Route: 058
     Dates: start: 2020

REACTIONS (4)
  - Discomfort [Unknown]
  - Pain [Unknown]
  - Product dose omission issue [Unknown]
  - Product administration error [Unknown]
